FAERS Safety Report 5365071-7 (Version None)
Quarter: 2007Q2

REPORT INFORMATION
  Report Type: 
  Country: None (occurrence: None)
  Receive Date: 20070621
  Receipt Date: 20070613
  Transmission Date: 20071010
  Serious: Yes (Hospitalization)
  Sender: FDA-Public Use
  Company Number: HQWYE607114JUN07

PATIENT
  Age: 20 Month
  Sex: Male

DRUGS (1)
  1. EFFEXOR XR [Suspect]
     Dosage: OVERDOSE AMOUNT  ^1 PILL^; UNKNOWN STRENGTH
     Route: 048
     Dates: start: 20070601, end: 20070601

REACTIONS (3)
  - ACCIDENTAL DRUG INTAKE BY CHILD [None]
  - ACCIDENTAL OVERDOSE [None]
  - FAILURE OF CHILD RESISTANT MECHANISM FOR PHARMACEUTICAL PRODUCT [None]
